FAERS Safety Report 20454329 (Version 1)
Quarter: 2022Q1

REPORT INFORMATION
  Report Type: Spontaneous
  Country: US (occurrence: None)
  Receive Date: 20220209
  Receipt Date: 20220209
  Transmission Date: 20220424
  Serious: Yes (Other)
  Sender: FDA-Public Use
  Company Number: None

PATIENT
  Age: 63 Year
  Sex: Female
  Weight: 63.45 kg

DRUGS (9)
  1. YESCARTA [Suspect]
     Active Substance: AXICABTAGENE CILOLEUCEL
     Indication: Diffuse large B-cell lymphoma
     Dosage: OTHER FREQUENCY : ONCE;?
     Route: 042
     Dates: start: 20190821, end: 20190821
  2. Daily Zarxio G-CSF 300 mcg [Concomitant]
     Dates: start: 20191226, end: 20191228
  3. Daily Zarxio G-CSF 300 mcg [Concomitant]
     Dates: start: 20200105, end: 20200107
  4. ENTECAVIR [Concomitant]
     Active Substance: ENTECAVIR
     Dates: start: 20130801
  5. ERYTHROMYCIN [Concomitant]
     Active Substance: ERYTHROMYCIN
  6. MIRTAZAPINE [Concomitant]
     Active Substance: MIRTAZAPINE
  7. VITAMIN D3 [Concomitant]
     Active Substance: CHOLECALCIFEROL
  8. CALCIUM CARBONATE [Concomitant]
     Active Substance: CALCIUM CARBONATE
  9. G-CSF 300mcg [Concomitant]

REACTIONS (9)
  - Disease recurrence [None]
  - Stem cell transplant [None]
  - Cytokine release syndrome [None]
  - Pyrexia [None]
  - Hypotension [None]
  - Neutropenia [None]
  - Bone marrow failure [None]
  - SARS-CoV-2 test positive [None]
  - Diffuse large B-cell lymphoma [None]

NARRATIVE: CASE EVENT DATE: 20210309
